FAERS Safety Report 11334069 (Version 1)
Quarter: 2015Q3

REPORT INFORMATION
  Report Type: Spontaneous
  Country: DK (occurrence: IE)
  Receive Date: 20150803
  Receipt Date: 20150803
  Transmission Date: 20151125
  Serious: Yes (Other)
  Sender: FDA-Public Use
  Company Number: IE-FRI-1000078684

PATIENT
  Age: 36 Year
  Sex: Female
  Weight: 68 kg

DRUGS (2)
  1. ESCITALOPRAM [Suspect]
     Active Substance: ESCITALOPRAM OXALATE
     Dosage: OVERDOSE: 5/6 TIMES PER DAY
     Route: 048
  2. ESCITALOPRAM [Suspect]
     Active Substance: ESCITALOPRAM OXALATE
     Indication: DEPRESSION
     Dosage: 5 MG
     Route: 048
     Dates: start: 20150306, end: 20150701

REACTIONS (8)
  - Unresponsive to stimuli [Recovered/Resolved]
  - Decreased appetite [Recovered/Resolved]
  - Paraesthesia [Recovered/Resolved]
  - Fatigue [Recovered/Resolved]
  - Dysgeusia [Recovered/Resolved]
  - Increased appetite [Recovered/Resolved]
  - Vertigo [Recovered/Resolved]
  - Overdose [Recovered/Resolved]

NARRATIVE: CASE EVENT DATE: 201503
